FAERS Safety Report 8163100-9 (Version None)
Quarter: 2012Q1

REPORT INFORMATION
  Report Type: 
  Country: None (occurrence: None)
  Receive Date: 20120224
  Receipt Date: 20120221
  Transmission Date: 20120608
  Serious: Yes (Hospitalization)
  Sender: FDA-Public Use
  Company Number: FR-GLAXOSMITHKLINE-B0783019A

PATIENT
  Age: 14 Year
  Sex: Female

DRUGS (5)
  1. DEPAKENE [Suspect]
     Indication: EPILEPSY
     Route: 048
     Dates: start: 20111226
  2. DESLORATADINE [Suspect]
     Indication: RASH PRURITIC
     Route: 048
     Dates: start: 20111203
  3. VALIUM [Suspect]
     Indication: EPILEPSY
     Route: 048
     Dates: start: 20111222
  4. PREDNISOLONE [Concomitant]
     Route: 065
     Dates: start: 20111226
  5. LAMICTAL [Suspect]
     Indication: EPILEPSY
     Route: 048
     Dates: start: 20111107, end: 20111222

REACTIONS (2)
  - PERICARDITIS [None]
  - DRUG RASH WITH EOSINOPHILIA AND SYSTEMIC SYMPTOMS [None]
